FAERS Safety Report 23517432 (Version 1)
Quarter: 2024Q1

REPORT INFORMATION
  Report Type: Spontaneous
  Country: US (occurrence: None)
  Receive Date: 20240212
  Receipt Date: 20240212
  Transmission Date: 20240410
  Serious: Yes (Hospitalization)
  Sender: FDA-Public Use
  Company Number: None

PATIENT
  Sex: Female

DRUGS (1)
  1. EPOGEN [Suspect]
     Active Substance: ERYTHROPOIETIN
     Indication: End stage renal disease
     Dosage: OTHER FREQUENCY : MON, WED, FRIDAY;?INJECT 0.1ML (OR 10 UNITS ON INSULIN SYRINGE) SUBCUTANEOUSLY EVE
     Route: 058
     Dates: start: 202306

REACTIONS (2)
  - Blood pressure increased [None]
  - Nonspecific reaction [None]
